FAERS Safety Report 9077997 (Version 1)
Quarter: 2013Q1

REPORT INFORMATION
  Report Type: Report from Study
  Country: US (occurrence: US)
  Receive Date: 20130130
  Receipt Date: 20130130
  Transmission Date: 20140127
  Serious: No
  Sender: FDA-Public Use
  Company Number: US-ABBOTT-12P-163-0956168-00

PATIENT
  Age: 67 Year
  Sex: Male

DRUGS (13)
  1. HUMIRA 40 MG/0.8 ML PEN [Suspect]
     Indication: PSORIASIS
     Dates: start: 201205
  2. CYMBALTA [Concomitant]
     Indication: DEPRESSION
  3. TERAZOSIN [Concomitant]
     Indication: PROSTATIC DISORDER
  4. METOCLOPRAMIDE [Concomitant]
     Indication: GASTRIC DISORDER
  5. METOPROLOL [Concomitant]
     Indication: CARDIAC DISORDER
  6. ROSUVASTATIN [Concomitant]
     Indication: BLOOD CHOLESTEROL
  7. OMEPRAZOLE [Concomitant]
     Indication: GASTRIC DISORDER
  8. LOSARTAN [Concomitant]
     Indication: CARDIAC DISORDER
  9. ASPIRIN [Concomitant]
     Indication: CARDIAC DISORDER
  10. METFORMIN [Concomitant]
     Indication: DIABETES MELLITUS
  11. FISH OIL [Concomitant]
     Indication: SUPPLEMENTATION THERAPY
  12. CLOBETASOL [Concomitant]
     Indication: PSORIASIS
  13. CLOBETASOL [Concomitant]

REACTIONS (5)
  - Wrong technique in drug usage process [Not Recovered/Not Resolved]
  - Injection site haemorrhage [Not Recovered/Not Resolved]
  - Muscle strain [Not Recovered/Not Resolved]
  - Limb discomfort [Not Recovered/Not Resolved]
  - Limb discomfort [Not Recovered/Not Resolved]
